FAERS Safety Report 4937269-0 (Version None)
Quarter: 2006Q1

REPORT INFORMATION
  Report Type: 
  Country: None (occurrence: None)
  Receive Date: 20060307
  Receipt Date: 20060307
  Transmission Date: 20060701
  Serious: Yes (Other)
  Sender: FDA-Public Use
  Company Number: None

PATIENT
  Age: 64 Year
  Sex: Male

DRUGS (1)
  1. LEVITRA [Suspect]
     Indication: ERECTILE DYSFUNCTION
     Dosage: ORAL; 10.0 MILLIGRAM PM
     Route: 048
     Dates: start: 20051229, end: 20060124

REACTIONS (2)
  - ANXIETY [None]
  - FEELING ABNORMAL [None]
